FAERS Safety Report 22378264 (Version 1)
Quarter: 2023Q2

REPORT INFORMATION
  Report Type: Spontaneous
  Country: US (occurrence: US)
  Receive Date: 20230529
  Receipt Date: 20230529
  Transmission Date: 20230722
  Serious: No
  Sender: FDA-Public Use
  Company Number: US-SANOFI-01628975

PATIENT
  Age: 71 Year
  Sex: Female

DRUGS (1)
  1. LANTUS SOLOSTAR [Suspect]
     Active Substance: INSULIN GLARGINE
     Indication: Type 2 diabetes mellitus
     Dosage: 55 UNITS 1X AND DRUG TREATMENT DURATION:ABOUT A YEAR AND A HALF
     Dates: start: 2022

REACTIONS (3)
  - Adverse event [Unknown]
  - Memory impairment [Unknown]
  - Wrong technique in device usage process [Unknown]
